FAERS Safety Report 8395611-5 (Version None)
Quarter: 2012Q2

REPORT INFORMATION
  Report Type: 
  Country: None (occurrence: None)
  Receive Date: 20120530
  Receipt Date: 20111117
  Transmission Date: 20120825
  Serious: No
  Sender: FDA-Public Use
  Company Number: US-GLAXOSMITHKLINE-A0953742A

PATIENT
  Sex: Male

DRUGS (9)
  1. PULMICORT [Concomitant]
  2. ATENOLOL [Concomitant]
  3. VENTOLIN [Suspect]
     Indication: CHRONIC OBSTRUCTIVE PULMONARY DISEASE
     Route: 065
  4. LASIX [Concomitant]
  5. PREDNISONE TAB [Concomitant]
  6. HYDROCHLOROTHIAZIDE [Concomitant]
  7. HYDRALAZINE HCL [Concomitant]
  8. NEBULIZER [Concomitant]
  9. LISINOPRIL [Concomitant]

REACTIONS (2)
  - INCREASED UPPER AIRWAY SECRETION [None]
  - OVERDOSE [None]
